FAERS Safety Report 10421035 (Version 3)
Quarter: 2015Q1

REPORT INFORMATION
  Report Type: Spontaneous
  Country: NO (occurrence: None)
  Receive Date: 20140828
  Receipt Date: 20150205
  Transmission Date: 20150720
  Serious: Yes (Other)
  Sender: FDA-Public Use
  Company Number: 2506211

PATIENT
  Age: 9 Year
  Sex: Male

DRUGS (1)
  1. VINCRISTINE SULFATE. [Suspect]
     Active Substance: VINCRISTINE SULFATE
     Indication: ACUTE LYMPHOCYTIC LEUKAEMIA
     Route: 042

REACTIONS (10)
  - Headache [None]
  - Diarrhoea [None]
  - Wrong technique in drug usage process [None]
  - Drug administered at inappropriate site [None]
  - Product label confusion [None]
  - Gastrointestinal pain [None]
  - Constipation [None]
  - Gastric ulcer haemorrhage [None]
  - Dysgeusia [None]
  - Pain in jaw [None]

NARRATIVE: CASE EVENT DATE: 20140805
